FAERS Safety Report 23867830 (Version 1)
Quarter: 2024Q2

REPORT INFORMATION
  Report Type: Spontaneous
  Country: CA (occurrence: CA)
  Receive Date: 20240517
  Receipt Date: 20240517
  Transmission Date: 20240716
  Serious: Yes (Other)
  Sender: FDA-Public Use
  Company Number: CA-TEVA-VS-3183540

PATIENT
  Age: 53 Year
  Sex: Female
  Weight: 84 kg

DRUGS (7)
  1. PURINETHOL [Suspect]
     Active Substance: MERCAPTOPURINE
     Indication: Product used for unknown indication
     Route: 065
  2. PREDNISONE [Suspect]
     Active Substance: PREDNISONE
     Indication: Product used for unknown indication
     Route: 065
  3. MESALAMINE [Suspect]
     Active Substance: MESALAMINE
     Indication: Product used for unknown indication
     Route: 065
  4. INFLIXIMAB [Suspect]
     Active Substance: INFLIXIMAB
     Indication: Crohn^s disease
     Route: 065
  5. INFLIXIMAB [Suspect]
     Active Substance: INFLIXIMAB
     Indication: Crohn^s disease
     Route: 065
  6. INFLIXIMAB [Suspect]
     Active Substance: INFLIXIMAB
     Indication: Crohn^s disease
     Route: 065
  7. INFLIXIMAB [Suspect]
     Active Substance: INFLIXIMAB
     Indication: Crohn^s disease
     Route: 065

REACTIONS (12)
  - Bronchitis [Recovered/Resolved]
  - Melanocytic naevus [Recovered/Resolved]
  - Pancreatitis [Recovered/Resolved]
  - Intentional product use issue [Recovered/Resolved]
  - Off label use [Recovered/Resolved]
  - Drug ineffective [Recovered/Resolved]
  - Drug ineffective [Recovered/Resolved]
  - Drug ineffective [Recovered/Resolved]
  - COVID-19 [Recovered/Resolved]
  - Carpal tunnel syndrome [Recovered/Resolved]
  - Diarrhoea [Recovered/Resolved]
  - Eye infection [Recovered/Resolved]
